FAERS Safety Report 7682219-X (Version None)
Quarter: 2011Q3

REPORT INFORMATION
  Report Type: 
  Country: None (occurrence: None)
  Receive Date: 20110815
  Receipt Date: 20110813
  Transmission Date: 20111222
  Serious: No
  Sender: FDA-Public Use
  Company Number: US-PFIZER INC-2011186381

PATIENT
  Sex: Female
  Weight: 56.2 kg

DRUGS (5)
  1. SUBOXONE [Suspect]
     Dosage: UNK
     Route: 048
     Dates: start: 20110101
  2. CLARITIN-D 24 HOUR [Concomitant]
     Indication: HYPERSENSITIVITY
     Dosage: 5/120MG, DAILY
  3. CHANTIX [Suspect]
     Indication: SMOKING CESSATION THERAPY
     Dosage: 0.5 MG, DAILY
     Route: 048
     Dates: start: 20110809, end: 20110801
  4. SUBOXONE [Suspect]
     Indication: DRUG DETOXIFICATION
     Dosage: 8/2 MG, UNK
     Route: 048
     Dates: start: 20110517, end: 20110101
  5. CHANTIX [Suspect]
     Dosage: 0.5 MG, 2X/DAY
     Route: 048
     Dates: start: 20110801

REACTIONS (4)
  - NAUSEA [None]
  - FEELING HOT [None]
  - COLD SWEAT [None]
  - HOT FLUSH [None]
